FAERS Safety Report 9904311 (Version 1)
Quarter: 2014Q1

REPORT INFORMATION
  Report Type: Spontaneous
  Country: US (occurrence: US)
  Receive Date: 20140218
  Receipt Date: 20140218
  Transmission Date: 20141002
  Serious: No
  Sender: FDA-Public Use
  Company Number: US-PFIZER INC-2014044511

PATIENT
  Age: 52 Year
  Sex: Female

DRUGS (1)
  1. XELJANZ [Suspect]
     Dosage: 5 MG, 2X/DAY
     Route: 048
     Dates: start: 20140207, end: 20140213

REACTIONS (4)
  - Headache [Recovered/Resolved]
  - Oropharyngeal pain [Unknown]
  - Ear pain [Unknown]
  - Rhinorrhoea [Unknown]
